FAERS Safety Report 19722765 (Version 1)
Quarter: 2021Q3

REPORT INFORMATION
  Report Type: Spontaneous
  Country: GB (occurrence: GB)
  Receive Date: 20210819
  Receipt Date: 20210819
  Transmission Date: 20211014
  Serious: Yes (Other)
  Sender: FDA-Public Use
  Company Number: GB-MYLANLABS-2021M1052979

PATIENT
  Age: 41 Year
  Sex: Female
  Weight: 68 kg

DRUGS (8)
  1. HYLO?FORTE [Concomitant]
     Active Substance: HYALURONATE SODIUM
     Indication: DRY EYE
     Dosage: UNK
  2. FERROUS FUMARATE [Concomitant]
     Active Substance: FERROUS FUMARATE
     Indication: FATIGUE
     Dosage: UNK
  3. CARBIMAZOLE [Concomitant]
     Active Substance: CARBIMAZOLE
     Indication: THYROID FUNCTION TEST ABNORMAL
     Dosage: UNK
  4. OLANZAPINE. [Concomitant]
     Active Substance: OLANZAPINE
     Indication: PSYCHOTIC DISORDER
     Dosage: UNK
  5. ATOVAQUONE/PROGUANIL [Suspect]
     Active Substance: ATOVAQUONE\PROGUANIL
     Indication: MALARIA PROPHYLAXIS
     Dosage: 1 DOSAGE FORM, QD, 1 TABLET A DAY (250MG/100MG)
     Route: 048
     Dates: start: 20210724
  6. COSOPT [Concomitant]
     Active Substance: DORZOLAMIDE HYDROCHLORIDE\TIMOLOL MALEATE
     Indication: GLAUCOMA
     Dosage: UNK
  7. IOPIDINE                           /00948502/ [Concomitant]
     Indication: GLAUCOMA
     Dosage: UNK
  8. MONOPOST [Concomitant]
     Active Substance: LATANOPROST
     Indication: GLAUCOMA
     Dosage: UNK

REACTIONS (2)
  - Insomnia [Recovering/Resolving]
  - Hallucination, auditory [Recovering/Resolving]

NARRATIVE: CASE EVENT DATE: 20210727
